FAERS Safety Report 16822361 (Version 1)
Quarter: 2019Q4

REPORT INFORMATION
  Report Type: Spontaneous
  Country: US (occurrence: US)
  Receive Date: 20190918
  Receipt Date: 20190918
  Transmission Date: 20200122
  Serious: Yes (Other)
  Sender: FDA-Public Use
  Company Number: None

PATIENT
  Age: 62 Year
  Sex: Female
  Weight: 82.35 kg

DRUGS (2)
  1. LAMOTRIGINE. [Suspect]
     Active Substance: LAMOTRIGINE
     Indication: BIPOLAR DISORDER
     Route: 048
     Dates: start: 20190126, end: 20190807
  2. FLUOXETINE 20MG ONCE DAILY [Concomitant]
     Dates: start: 20170313

REACTIONS (6)
  - Chest discomfort [None]
  - Chronic obstructive pulmonary disease [None]
  - Pain [None]
  - Headache [None]
  - Nausea [None]
  - Dyspnoea at rest [None]

NARRATIVE: CASE EVENT DATE: 20190619
